FAERS Safety Report 8347123-2 (Version None)
Quarter: 2012Q1

REPORT INFORMATION
  Report Type: 
  Country: None (occurrence: None)
  Receive Date: 20120315
  Receipt Date: 20110502
  Transmission Date: 20120608
  Serious: No
  Sender: FDA-Public Use
  Company Number: PHHY2011US34728

PATIENT
  Age: 55 Year
  Sex: Female
  Weight: 85.3 kg

DRUGS (6)
  1. IBUPROFEN (ADVIL) [Concomitant]
  2. FISH OIL (FISH OIL) [Concomitant]
  3. PROVIGIL [Concomitant]
  4. AMPYRA [Concomitant]
  5. GILENYA [Suspect]
     Indication: MULTIPLE SCLEROSIS
     Dosage: 0.5 MG, QD, ORAL
     Route: 048
     Dates: start: 20110418
  6. MEFENAMIC ACID [Concomitant]

REACTIONS (1)
  - FLUSHING [None]
